FAERS Safety Report 9316252 (Version 2)
Quarter: 2013Q4

REPORT INFORMATION
  Report Type: Spontaneous
  Country: GB (occurrence: None)
  Receive Date: 20130521
  Receipt Date: 20131015
  Transmission Date: 20140711
  Serious: Yes (Other)
  Sender: FDA-Public Use
  Company Number: AUR-APL-2013-04094

PATIENT
  Sex: Male

DRUGS (1)
  1. FLUOXETINE (FLUOXETINE) [Suspect]
     Indication: DEPRESSION
     Dates: start: 2006

REACTIONS (4)
  - Loss of libido [None]
  - Cognitive disorder [None]
  - Fatigue [None]
  - Lethargy [None]
